FAERS Safety Report 21153267 (Version 1)
Quarter: 2022Q3

REPORT INFORMATION
  Report Type: Spontaneous
  Country: US (occurrence: US)
  Receive Date: 20220731
  Receipt Date: 20220731
  Transmission Date: 20221027
  Serious: No
  Sender: FDA-Public Use
  Company Number: US-ELI_LILLY_AND_COMPANY-US202207013478

PATIENT
  Age: 33 Year
  Sex: Female

DRUGS (1)
  1. EMGALITY [Suspect]
     Active Substance: GALCANEZUMAB-GNLM
     Indication: Product used for unknown indication
     Dosage: 240 MG, SINGLE, LOADING DOSE
     Route: 065
     Dates: start: 202206

REACTIONS (3)
  - Chest pain [Unknown]
  - Fatigue [Unknown]
  - Urticaria [Unknown]

NARRATIVE: CASE EVENT DATE: 20220601
